FAERS Safety Report 9921776 (Version 1)
Quarter: 2014Q1

REPORT INFORMATION
  Report Type: Spontaneous
  Country: US (occurrence: None)
  Receive Date: 20140221
  Receipt Date: 20140221
  Transmission Date: 20141002
  Serious: Yes (Life-Threatening, Hospitalization, Other)
  Sender: FDA-Public Use
  Company Number: None

PATIENT
  Age: 67 Year
  Sex: Male
  Weight: 77.11 kg

DRUGS (8)
  1. PREDNISONE 20 MG QUALITEST [Suspect]
     Indication: INFLUENZA
     Route: 048
     Dates: start: 20121219, end: 20121224
  2. PREDNISONE 20 MG QUALITEST [Suspect]
     Indication: PNEUMONIA
     Route: 048
     Dates: start: 20121219, end: 20121224
  3. METOPROLOL TARTRATE [Concomitant]
  4. CLOSAPRIM [Concomitant]
  5. VIT E [Concomitant]
  6. VITAMIN B [Concomitant]
  7. VITAMIN D3 [Concomitant]
  8. FOLIC ACID [Concomitant]

REACTIONS (2)
  - Heart rate increased [None]
  - Atrial fibrillation [None]
